FAERS Safety Report 8906432 (Version 1)
Quarter: 2012Q4

REPORT INFORMATION
  Report Type: Spontaneous
  Country: DK (occurrence: None)
  Receive Date: 20121107
  Receipt Date: 20121107
  Transmission Date: 20130627
  Serious: Yes (Hospitalization)
  Sender: FDA-Public Use
  Company Number: 2012MA012883

PATIENT
  Age: 54 Year
  Sex: Male

DRUGS (5)
  1. GEMCITABINE HYDROCHLORIDE [Suspect]
     Indication: TRANSITIONAL CELL CARCINOMA
     Route: 042
     Dates: start: 20120424
  2. CISPLATIN [Suspect]
     Indication: UROTHELIAL CARCINOMA
     Route: 042
     Dates: start: 20120424
  3. SUNITINIB [Suspect]
     Indication: TRANSITIONAL CELL CARCINOMA
     Dates: start: 20120403
  4. ZOMORPH [Concomitant]
  5. LANSOPRAZOLE [Concomitant]

REACTIONS (7)
  - Lower respiratory tract infection [None]
  - Vomiting [None]
  - Diarrhoea [None]
  - Blood glucose increased [None]
  - Alanine aminotransferase increased [None]
  - Blood alkaline phosphatase increased [None]
  - Gamma-glutamyltransferase increased [None]
